FAERS Safety Report 7215145-0 (Version None)
Quarter: 2011Q1

REPORT INFORMATION
  Report Type: 
  Country: None (occurrence: None)
  Receive Date: 20110107
  Receipt Date: 20100913
  Transmission Date: 20110831
  Serious: No
  Sender: FDA-Public Use
  Company Number: A0880855A

PATIENT
  Age: 64 Year
  Sex: Female

DRUGS (3)
  1. MULTI-VITAMIN [Concomitant]
  2. LOVAZA [Suspect]
     Dosage: 2G TWICE PER DAY
     Route: 048
     Dates: start: 20100101
  3. THYROID MEDICATION [Concomitant]

REACTIONS (1)
  - NAUSEA [None]
